FAERS Safety Report 21874610 (Version 2)
Quarter: 2023Q1

REPORT INFORMATION
  Report Type: Spontaneous
  Country: US (occurrence: None)
  Receive Date: 20230117
  Receipt Date: 20230314
  Transmission Date: 20230418
  Serious: No
  Sender: FDA-Public Use
  Company Number: 2022A420486

PATIENT
  Age: 24078 Day
  Sex: Female
  Weight: 51.7 kg

DRUGS (1)
  1. SYMBICORT [Suspect]
     Active Substance: BUDESONIDE\FORMOTEROL FUMARATE DIHYDRATE
     Indication: Influenza
     Dosage: 160/4.5MCG 1 PUFF TWICE A DAY
     Route: 055
     Dates: start: 20221229

REACTIONS (4)
  - Product use in unapproved indication [Unknown]
  - Device use issue [Unknown]
  - Device malfunction [Unknown]
  - Product prescribing issue [Unknown]

NARRATIVE: CASE EVENT DATE: 20221228
